FAERS Safety Report 9188281 (Version 1)
Quarter: 2013Q1

REPORT INFORMATION
  Report Type: Spontaneous
  Country: US (occurrence: US)
  Receive Date: 20130325
  Receipt Date: 20130325
  Transmission Date: 20140127
  Serious: No
  Sender: FDA-Public Use
  Company Number: US-PFIZER INC-2013096354

PATIENT
  Age: 61 Year
  Sex: Female
  Weight: 77.1 kg

DRUGS (2)
  1. LYRICA [Suspect]
     Dosage: 75 MG, 1X/DAY
     Route: 048
  2. ADVAIR [Concomitant]
     Dosage: UNK

REACTIONS (2)
  - Somnolence [Recovered/Resolved]
  - Drug intolerance [Unknown]
